FAERS Safety Report 25974426 (Version 2)
Quarter: 2025Q4

REPORT INFORMATION
  Report Type: Spontaneous
  Country: US (occurrence: US)
  Receive Date: 20251029
  Receipt Date: 20251110
  Transmission Date: 20260118
  Serious: Yes (Other)
  Sender: TEVA
  Company Number: US-TEVA-VS-3384957

PATIENT

DRUGS (3)
  1. DEXAMETHASONE [Suspect]
     Active Substance: DEXAMETHASONE
     Indication: Plasma cell myeloma refractory
     Dosage: CYCLIC;  ON DAYS 1, 8, 15, AND 22 OF EACH CYCLE
     Route: 048
  2. MELPHALAN FLUFENAMIDE [Suspect]
     Active Substance: MELPHALAN FLUFENAMIDE
     Indication: Plasma cell myeloma refractory
     Dosage: CYCLICAL; OVER 30MIN ON DAY 1 OF EACH 28DAY CYCLE
     Route: 042
  3. BELANTAMAB MAFODOTIN [Suspect]
     Active Substance: BELANTAMAB MAFODOTIN
     Indication: Plasma cell myeloma refractory
     Route: 065

REACTIONS (3)
  - Drug ineffective [Unknown]
  - Ocular toxicity [Unknown]
  - Haematotoxicity [Unknown]
